FAERS Safety Report 7677479-5 (Version None)
Quarter: 2011Q3

REPORT INFORMATION
  Report Type: 
  Country: None (occurrence: None)
  Receive Date: 20110811
  Receipt Date: 20110607
  Transmission Date: 20111222
  Serious: No
  Sender: FDA-Public Use
  Company Number: US-BRISTOL-MYERS SQUIBB COMPANY-15785181

PATIENT
  Age: 19 Year
  Sex: Male

DRUGS (3)
  1. EPZICOM [Suspect]
     Indication: HIV INFECTION
     Dates: start: 20110523
  2. REYATAZ [Suspect]
     Indication: HIV INFECTION
     Route: 048
     Dates: start: 20110523
  3. NORVIR [Suspect]
     Indication: HIV INFECTION
     Dates: start: 20110523

REACTIONS (4)
  - REGURGITATION [None]
  - NAUSEA [None]
  - VOMITING [None]
  - DYSPNOEA [None]
